FAERS Safety Report 9341326 (Version 1)
Quarter: 2013Q2

REPORT INFORMATION
  Report Type: Spontaneous
  Country: US (occurrence: None)
  Receive Date: 20130610
  Receipt Date: 20130610
  Transmission Date: 20140414
  Serious: Yes (Life-Threatening)
  Sender: FDA-Public Use
  Company Number: None

PATIENT
  Age: 44 Year
  Sex: Female
  Weight: 70.31 kg

DRUGS (5)
  1. CETIRIZINE [Suspect]
     Indication: MULTIPLE ALLERGIES
     Dosage: 30 ONCE A DAY
     Dates: start: 20130501, end: 20130520
  2. CETIRIZINE [Suspect]
     Indication: SNEEZING
     Dosage: 30 ONCE A DAY
     Dates: start: 20130501, end: 20130520
  3. CETIRIZINE [Suspect]
     Indication: EYE PRURITUS
     Dosage: 30 ONCE A DAY
     Dates: start: 20130501, end: 20130520
  4. CETIRIZINE [Suspect]
     Indication: LACRIMATION INCREASED
     Dosage: 30 ONCE A DAY
     Dates: start: 20130501, end: 20130520
  5. CETIRIZINE [Suspect]
     Indication: RHINORRHOEA
     Dosage: 30 ONCE A DAY
     Dates: start: 20130501, end: 20130520

REACTIONS (1)
  - Constipation [None]
